FAERS Safety Report 7052238-5 (Version None)
Quarter: 2010Q4

REPORT INFORMATION
  Report Type: 
  Country: None (occurrence: None)
  Receive Date: 20101018
  Receipt Date: 20101018
  Transmission Date: 20110411
  Serious: Yes (Other)
  Sender: FDA-Public Use
  Company Number: None

PATIENT
  Age: 10 Year
  Sex: Female
  Weight: 35.7 kg

DRUGS (1)
  1. LEVETIRACETAM [Suspect]
     Indication: CONVULSION PROPHYLAXIS
     Dosage: 750 MG BID IV
     Route: 042
     Dates: start: 20100712, end: 20100725

REACTIONS (4)
  - ABNORMAL BEHAVIOUR [None]
  - FEAR [None]
  - HALLUCINATION [None]
  - THINKING ABNORMAL [None]
